FAERS Safety Report 7605441-7 (Version None)
Quarter: 2011Q3

REPORT INFORMATION
  Report Type: 
  Country: None (occurrence: None)
  Receive Date: 20110713
  Receipt Date: 20110708
  Transmission Date: 20111222
  Serious: Yes (Death, Life-Threatening, Hospitalization)
  Sender: FDA-Public Use
  Company Number: US-ASTRAZENECA-2011SE40790

PATIENT
  Age: 83 Year
  Sex: Male
  Weight: 76.2 kg

DRUGS (2)
  1. ZOLADEX [Suspect]
     Route: 058
     Dates: start: 20100212
  2. ZOLADEX [Suspect]
     Route: 058
     Dates: start: 20100115

REACTIONS (4)
  - ATRIAL FIBRILLATION [None]
  - ACUTE MYOCARDIAL INFARCTION [None]
  - CARDIAC FAILURE CONGESTIVE [None]
  - BONE DISORDER [None]
